FAERS Safety Report 6996515-2 (Version None)
Quarter: 2010Q3

REPORT INFORMATION
  Report Type: 
  Country: None (occurrence: None)
  Receive Date: 20100918
  Receipt Date: 20090413
  Transmission Date: 20110219
  Serious: No
  Sender: FDA-Public Use
  Company Number: US-WYE-H08948309

PATIENT
  Sex: Female
  Weight: 80.81 kg

DRUGS (3)
  1. EFFEXOR XR [Suspect]
     Indication: DEPRESSION
     Route: 048
     Dates: start: 20040101, end: 20090302
  2. EFFEXOR XR [Suspect]
     Route: 048
     Dates: start: 20090313
  3. VITAMINS [Concomitant]
     Dosage: UNKNOWN

REACTIONS (8)
  - BLEPHAROSPASM [None]
  - CRYING [None]
  - DEPRESSION [None]
  - DRUG WITHDRAWAL SYNDROME [None]
  - DYSKINESIA [None]
  - HALLUCINATION [None]
  - MOOD SWINGS [None]
  - TREMOR [None]
